FAERS Safety Report 8839488 (Version 2)
Quarter: 2012Q4

REPORT INFORMATION
  Report Type: 
  Country: JP (occurrence: JP)
  Receive Date: 20121015
  Receipt Date: 20121119
  Transmission Date: 20130627
  Serious: Yes (Hospitalization)
  Sender: FDA-Public Use
  Company Number: JP-JNJFOC-20121006289

PATIENT
  Age: 64 Year
  Sex: Male

DRUGS (1)
  1. REMICADE [Suspect]
     Indication: COLITIS ULCERATIVE
     Dosage: at week 0, 2 and 6 weeks and at 8week intervals
     Route: 042

REACTIONS (1)
  - Pneumocystis jiroveci pneumonia [Recovered/Resolved]
